FAERS Safety Report 8838086 (Version 1)
Quarter: 2012Q4

REPORT INFORMATION
  Report Type: 
  Country: PH (occurrence: PH)
  Receive Date: 20121012
  Receipt Date: 20121012
  Transmission Date: 20130627
  Serious: Yes (Death)
  Sender: FDA-Public Use
  Company Number: PH-BAXTER-2012BAX019374

PATIENT
  Age: 35 Year
  Sex: Female

DRUGS (2)
  1. DIANEAL PD2 WITH 1.5% DEXTROSE [Suspect]
     Indication: CAPD
     Route: 033
     Dates: start: 20090611
  2. DIANEAL PD2 WITH 4.25% DEXTROSE [Suspect]
     Indication: CAPD
     Route: 033
     Dates: start: 20090611

REACTIONS (1)
  - Cardiac arrest [Fatal]
